FAERS Safety Report 9875025 (Version 1)
Quarter: 2014Q1

REPORT INFORMATION
  Report Type: Spontaneous
  Country: CA (occurrence: CA)
  Receive Date: 20140206
  Receipt Date: 20140206
  Transmission Date: 20141002
  Serious: No
  Sender: FDA-Public Use
  Company Number: PHHY2014CA014062

PATIENT
  Sex: Female
  Weight: 37.19 kg

DRUGS (15)
  1. ACLASTA [Suspect]
     Dosage: 5 MG, UNK
     Route: 042
  2. ASA [Concomitant]
     Dosage: UNK UKN, UNK
  3. ATORVASTATIN CALCIUM [Concomitant]
     Dosage: UNK UKN, UNK
  4. CALCIUM CARBONATE [Concomitant]
     Dosage: UNK UKN, UNK
  5. CARVEDILOL [Concomitant]
     Dosage: UNK UKN, UNK
  6. CLOPIDOGREL [Concomitant]
     Dosage: UNK UKN, UNK
  7. EPREX [Concomitant]
     Dosage: UNK UKN, UNK
     Route: 042
  8. K-DUR [Concomitant]
     Dosage: UNK UKN, UNK
  9. METOPROLOL [Concomitant]
     Dosage: UNK UKN, UNK
  10. OMEPRAZOLE [Concomitant]
     Dosage: UNK UKN, UNK
  11. PANTOPRAZOLE [Concomitant]
     Dosage: UNK UKN, UNK
  12. SEREVENT [Concomitant]
     Dosage: UNK UKN, UNK
  13. SPIRIVA [Concomitant]
     Dosage: UNK UKN, UNK
  14. VITAMIN D [Concomitant]
     Dosage: UNK UKN, UNK
  15. WARFARIN [Concomitant]
     Dosage: UNK UKN, UNK

REACTIONS (1)
  - Osteonecrosis of jaw [Recovered/Resolved]
